FAERS Safety Report 18565283 (Version 3)
Quarter: 2020Q4

REPORT INFORMATION
  Report Type: Spontaneous
  Country: FR (occurrence: FR)
  Receive Date: 20201201
  Receipt Date: 20201207
  Transmission Date: 20210114
  Serious: Yes (Other)
  Sender: FDA-Public Use
  Company Number: NVSC2020FR319960

PATIENT
  Age: 28 Year
  Sex: Male

DRUGS (2)
  1. PARACETAMOL [Suspect]
     Active Substance: ACETAMINOPHEN
     Indication: ERYTHEMA
     Dosage: UNK
     Route: 065
  2. SPIRAMYCIN [Suspect]
     Active Substance: SPIRAMYCIN
     Indication: ERYTHEMA
     Dosage: UNK
     Route: 065

REACTIONS (9)
  - Dermatitis exfoliative generalised [Unknown]
  - Lymphadenopathy [Unknown]
  - Drug reaction with eosinophilia and systemic symptoms [Unknown]
  - Hyperthermia [Unknown]
  - Rash macular [Unknown]
  - Asthenia [Unknown]
  - Off label use [Unknown]
  - Pityriasis rosea [Unknown]
  - General physical health deterioration [Unknown]
